FAERS Safety Report 20715406 (Version 1)
Quarter: 2022Q2

REPORT INFORMATION
  Report Type: Spontaneous
  Country: US (occurrence: US)
  Receive Date: 20220415
  Receipt Date: 20220415
  Transmission Date: 20220721
  Serious: No
  Sender: FDA-Public Use
  Company Number: US-PFIZER INC-202101057938

PATIENT
  Age: 28 Year
  Sex: Male
  Weight: 70 kg

DRUGS (1)
  1. EUCRISA [Suspect]
     Active Substance: CRISABOROLE
     Indication: Haemorrhoids
     Dosage: UNK
     Route: 054
     Dates: start: 20210816, end: 20210816

REACTIONS (5)
  - Wrong product administered [Unknown]
  - Product appearance confusion [Unknown]
  - Proctalgia [Recovering/Resolving]
  - Anal pruritus [Recovering/Resolving]
  - Anorectal discomfort [Recovering/Resolving]

NARRATIVE: CASE EVENT DATE: 20210816
